FAERS Safety Report 4987770-9 (Version None)
Quarter: 2006Q2

REPORT INFORMATION
  Report Type: 
  Country: None (occurrence: None)
  Receive Date: 20060428
  Receipt Date: 20060428
  Transmission Date: 20061013
  Serious: No
  Sender: FDA-Public Use
  Company Number: None

PATIENT
  Sex: Female
  Weight: 97.977 kg

DRUGS (2)
  1. FAMOTIDINE [Suspect]
     Indication: GASTROOESOPHAGEAL REFLUX DISEASE
     Dosage: 40 MG PO QD
     Route: 048
     Dates: start: 20060120, end: 20060425
  2. OMEPRAZOLE [Concomitant]

REACTIONS (1)
  - NO THERAPEUTIC RESPONSE [None]
